FAERS Safety Report 10087060 (Version 1)
Quarter: 2014Q2

REPORT INFORMATION
  Report Type: Spontaneous
  Country: US (occurrence: US)
  Receive Date: 20140418
  Receipt Date: 20140418
  Transmission Date: 20141212
  Serious: No
  Sender: FDA-Public Use
  Company Number: US-TEVA-476318USA

PATIENT
  Age: 23 Year
  Sex: Female
  Weight: 44.49 kg

DRUGS (2)
  1. PARAGARD 380A [Suspect]
     Indication: CONTRACEPTION
     Route: 015
     Dates: start: 201402, end: 20140304
  2. PRENATAL VITAMINS [Concomitant]
     Indication: BREAST FEEDING

REACTIONS (4)
  - Abdominal distension [Recovered/Resolved]
  - Discomfort [Not Recovered/Not Resolved]
  - Abdominal pain lower [Not Recovered/Not Resolved]
  - Dyspareunia [Recovered/Resolved]
